FAERS Safety Report 5427193-1 (Version None)
Quarter: 2007Q3

REPORT INFORMATION
  Report Type: 
  Country: None (occurrence: None)
  Receive Date: 20070823
  Receipt Date: 20070809
  Transmission Date: 20080115
  Serious: Yes (Death, Hospitalization)
  Sender: FDA-Public Use
  Company Number: 159930ISR

PATIENT
  Age: 34 Year
  Sex: Male

DRUGS (2)
  1. LOPERAMIDE HCL [Suspect]
     Indication: DIARRHOEA
     Dosage: ORAL
     Route: 048
  2. LOPERAMIDE HCL [Suspect]
     Indication: VOMITING
     Dosage: ORAL
     Route: 048

REACTIONS (7)
  - ANAPHYLACTIC REACTION [None]
  - CARDIAC ARREST [None]
  - GASTROINTESTINAL OEDEMA [None]
  - GENERALISED OEDEMA [None]
  - PULMONARY OEDEMA [None]
  - SEPTIC SHOCK [None]
  - VOMITING [None]
